FAERS Safety Report 6638745-5 (Version None)
Quarter: 2010Q1

REPORT INFORMATION
  Report Type: 
  Country: None (occurrence: None)
  Receive Date: 20100317
  Receipt Date: 20100303
  Transmission Date: 20100710
  Serious: Yes (Hospitalization)
  Sender: FDA-Public Use
  Company Number: DE-BAUSCH-2010BL001178

PATIENT
  Age: 36 Year
  Sex: Male
  Weight: 70 kg

DRUGS (3)
  1. VIVINOX SLEEP STARK SCHLAFTABLETTEN [Suspect]
     Indication: SUICIDAL IDEATION
     Route: 048
     Dates: start: 20100303, end: 20100303
  2. DICLOFENAC [Suspect]
     Indication: SUICIDAL IDEATION
     Route: 048
     Dates: start: 20100303, end: 20100303
  3. LORAZEPAM [Suspect]
     Indication: SUICIDAL IDEATION
     Route: 048
     Dates: start: 20100303, end: 20100303

REACTIONS (2)
  - SOPOR [None]
  - SUICIDE ATTEMPT [None]
